FAERS Safety Report 9775319 (Version 1)
Quarter: 2013Q4

REPORT INFORMATION
  Report Type: Spontaneous
  Country: US (occurrence: None)
  Receive Date: 20131219
  Receipt Date: 20131219
  Transmission Date: 20140711
  Serious: Yes (Disabling)
  Sender: FDA-Public Use
  Company Number: None

PATIENT
  Age: 57 Year
  Sex: Male
  Weight: 65.77 kg

DRUGS (5)
  1. SIMVASTATIN [Suspect]
     Indication: BLOOD CHOLESTEROL INCREASED
     Dosage: 1, AT BEDTIME
     Route: 048
     Dates: start: 20130115, end: 20131031
  2. FLUTIASONE [Concomitant]
  3. ASMANEX [Concomitant]
  4. PROAIR HFA [Concomitant]
  5. MULTI VITAMINE [Concomitant]

REACTIONS (3)
  - Asthenia [None]
  - Tendon disorder [None]
  - Cataract [None]
